FAERS Safety Report 19389606 (Version 2)
Quarter: 2021Q4

REPORT INFORMATION
  Report Type: Spontaneous
  Country: JP (occurrence: None)
  Receive Date: 20210608
  Receipt Date: 20211116
  Transmission Date: 20220304
  Serious: Yes (Death, Hospitalization, Other)
  Sender: FDA-Public Use
  Company Number: 2021A497242

PATIENT
  Age: 31532 Day
  Sex: Female
  Weight: 32 kg

DRUGS (7)
  1. TAGRISSO [Suspect]
     Active Substance: OSIMERTINIB
     Indication: Non-small cell lung cancer
     Route: 048
     Dates: start: 20191119, end: 20191219
  2. TAGRISSO [Suspect]
     Active Substance: OSIMERTINIB
     Indication: Non-small cell lung cancer
     Route: 048
     Dates: start: 20200327, end: 20210511
  3. SPIRONOLACTONE [Concomitant]
     Active Substance: SPIRONOLACTONE
     Route: 065
     Dates: start: 20210516
  4. SAMSCA [Concomitant]
     Active Substance: TOLVAPTAN
     Route: 065
     Dates: start: 20210516
  5. PREDONINE [Concomitant]
     Active Substance: PREDNISOLONE
     Indication: Lung disorder
     Route: 065
     Dates: start: 20210515
  6. SOLU-MEDROL [Concomitant]
     Active Substance: METHYLPREDNISOLONE SODIUM SUCCINATE
     Indication: Respiratory disorder
     Route: 065
     Dates: start: 20210518
  7. ZOSYN [Concomitant]
     Active Substance: PIPERACILLIN SODIUM\TAZOBACTAM SODIUM
     Indication: Pneumonia aspiration
     Route: 065
     Dates: start: 20210520

REACTIONS (3)
  - Interstitial lung disease [Fatal]
  - Pneumonia aspiration [Fatal]
  - Cardiac failure [Fatal]

NARRATIVE: CASE EVENT DATE: 20210511
